FAERS Safety Report 5140889-4 (Version None)
Quarter: 2006Q4

REPORT INFORMATION
  Report Type: 
  Country: None (occurrence: None)
  Receive Date: 20060905
  Receipt Date: 20060801
  Transmission Date: 20070319
  Serious: Yes (Hospitalization)
  Sender: FDA-Public Use
  Company Number: 06P-163-0339291-00

PATIENT
  Age: 51 Year
  Sex: Female
  Weight: 81.6475 kg

DRUGS (2)
  1. TRICOR [Suspect]
     Indication: BLOOD TRIGLYCERIDES INCREASED
     Dosage: PER ORAL
     Route: 048
     Dates: start: 20060301
  2. FLUOXETINE HYDROCHLORIDE [Concomitant]

REACTIONS (3)
  - ABDOMINAL PAIN [None]
  - EMOTIONAL DISORDER [None]
  - TEARFULNESS [None]
